FAERS Safety Report 12169606 (Version 2)
Quarter: 2016Q1

REPORT INFORMATION
  Report Type: Spontaneous
  Country: US (occurrence: US)
  Receive Date: 20160310
  Receipt Date: 20160323
  Transmission Date: 20160526
  Serious: Yes (Other)
  Sender: FDA-Public Use
  Company Number: US-AMNEAL PHARMACEUTICALS-2016AMN00150

PATIENT
  Age: 63 Year
  Sex: Female
  Weight: 55.33 kg

DRUGS (2)
  1. PROPANOLOL [Concomitant]
     Active Substance: PROPRANOLOL HYDROCHLORIDE
     Indication: HYPERTENSION
  2. METFORMIN HYDROCHLORIDE. [Suspect]
     Active Substance: METFORMIN HYDROCHLORIDE
     Indication: GLUCOSE TOLERANCE IMPAIRED
     Dosage: UNK
     Route: 048
     Dates: start: 201506, end: 20160120

REACTIONS (14)
  - Dehydration [Unknown]
  - Loss of consciousness [Recovered/Resolved]
  - Hypotension [Unknown]
  - Palpitations [Unknown]
  - Dry mouth [Unknown]
  - Chills [Unknown]
  - Drug withdrawal syndrome [Unknown]
  - Weight loss diet [Unknown]
  - Anxiety [Unknown]
  - Sleep disorder [Unknown]
  - Heart rate increased [Unknown]
  - Headache [Unknown]
  - Cold sweat [Unknown]
  - Hypothermia [Unknown]

NARRATIVE: CASE EVENT DATE: 201506
